FAERS Safety Report 5044092-8 (Version None)
Quarter: 2006Q2

REPORT INFORMATION
  Report Type: 
  Country: None (occurrence: None)
  Receive Date: 20060629
  Receipt Date: 20060613
  Transmission Date: 20061013
  Serious: Yes (Other)
  Sender: FDA-Public Use
  Company Number: US183984

PATIENT
  Age: 80 Year
  Sex: Female

DRUGS (1)
  1. ENBREL [Suspect]
     Indication: POLYARTHRITIS
     Dosage: 25 MG, 1 IN 1 WEEKS, SC
     Route: 058

REACTIONS (2)
  - IRRITABILITY [None]
  - MENINGITIS CRYPTOCOCCAL [None]
